FAERS Safety Report 6369191-X (Version None)
Quarter: 2009Q3

REPORT INFORMATION
  Report Type: 
  Country: None (occurrence: None)
  Receive Date: 20090901
  Receipt Date: 20090821
  Transmission Date: 20100115
  Serious: Yes (Hospitalization)
  Sender: FDA-Public Use
  Company Number: AECAN200800221

PATIENT
  Age: 55 Year
  Sex: Male

DRUGS (4)
  1. IMMUNE GLOBULIN INTRAVENOUS (HUMAN) [Suspect]
     Indication: CHRONIC LYMPHOCYTIC LEUKAEMIA
     Dosage: 30 GM;TOTAL;IV
     Route: 042
     Dates: start: 20060101
  2. IMMUNE GLOBULIN INTRAVENOUS (HUMAN) [Suspect]
  3. LANTUS [Concomitant]
  4. NOVORAPID [Concomitant]

REACTIONS (11)
  - ABDOMINAL PAIN [None]
  - CELLULITIS [None]
  - CHILLS [None]
  - DYSPNOEA [None]
  - HYPERTENSION [None]
  - IMMUNE SYSTEM DISORDER [None]
  - NAUSEA [None]
  - PYREXIA [None]
  - TACHYCARDIA [None]
  - UROSEPSIS [None]
  - VOMITING [None]
